FAERS Safety Report 9283730 (Version 2)
Quarter: 2013Q2

REPORT INFORMATION
  Report Type: Spontaneous
  Country: PT (occurrence: PT)
  Receive Date: 20130510
  Receipt Date: 20130618
  Transmission Date: 20140414
  Serious: Yes (Other)
  Sender: FDA-Public Use
  Company Number: PT-VIIV HEALTHCARE LIMITED-B0890455A

PATIENT
  Age: 58 Year
  Sex: Male

DRUGS (4)
  1. COMBIVIR [Suspect]
     Indication: HIV INFECTION
     Dosage: 1TAB TWICE PER DAY
     Route: 048
     Dates: start: 20120827, end: 20130422
  2. VIRAMUNE [Concomitant]
     Indication: HIV INFECTION
     Dosage: 2TAB PER DAY
     Route: 048
     Dates: start: 20120827
  3. LISINOPRIL + HYDROCHLOROTHIAZIDE [Concomitant]
     Indication: HYPERTENSION
     Dosage: 1U PER DAY
     Route: 048
     Dates: start: 2009
  4. LORAZEPAM [Concomitant]
     Indication: INSOMNIA
     Dosage: 2.5MG PER DAY
     Route: 048

REACTIONS (5)
  - Mitochondrial toxicity [Recovered/Resolved]
  - Hepatocellular injury [Recovered/Resolved]
  - Cholestasis [Recovered/Resolved]
  - Anaemia [Recovered/Resolved]
  - Hepatic steatosis [Recovered/Resolved]
